FAERS Safety Report 7440357-0 (Version None)
Quarter: 2011Q2

REPORT INFORMATION
  Report Type: 
  Country: None (occurrence: None)
  Receive Date: 20110427
  Receipt Date: 20110420
  Transmission Date: 20111010
  Serious: Yes (Life-Threatening, Hospitalization)
  Sender: FDA-Public Use
  Company Number: CA-MERCK-1104USA02237

PATIENT
  Age: 63 Year
  Sex: Male
  Weight: 76 kg

DRUGS (7)
  1. JANUVIA [Suspect]
     Indication: BLOOD GLUCOSE INCREASED
     Route: 048
     Dates: start: 20110402, end: 20110410
  2. DOXEPIN HYDROCHLORIDE [Concomitant]
     Route: 065
  3. DILTIAZEM CD [Concomitant]
     Indication: HYPERTENSION
     Route: 065
     Dates: end: 20110410
  4. AVALIDE [Concomitant]
     Indication: HYPERTENSION
     Route: 065
     Dates: end: 20110410
  5. LEVOFLOXACIN [Concomitant]
     Route: 065
     Dates: start: 20110328, end: 20110410
  6. PANTOPRAZOLE [Concomitant]
     Route: 048
  7. AMOXICILLIN AND CLAVULANATE POTASSIUM [Concomitant]
     Route: 065
     Dates: start: 20110406, end: 20110410

REACTIONS (1)
  - RENAL FAILURE ACUTE [None]
